FAERS Safety Report 4820186-4 (Version None)
Quarter: 2005Q4

REPORT INFORMATION
  Report Type: 
  Country: None (occurrence: None)
  Receive Date: 20051012
  Receipt Date: 20050624
  Transmission Date: 20060501
  Serious: No
  Sender: FDA-Public Use
  Company Number: A03200501951

PATIENT
  Sex: Male

DRUGS (2)
  1. UROXATRAL [Suspect]
     Dosage: ORAL
     Route: 048
     Dates: start: 20050601
  2. ESOMEPRAZOLE [Concomitant]

REACTIONS (2)
  - ARTHRALGIA [None]
  - JOINT SWELLING [None]
